FAERS Safety Report 15613823 (Version 1)
Quarter: 2018Q4

REPORT INFORMATION
  Report Type: Spontaneous
  Country: KR (occurrence: KR)
  Receive Date: 20181113
  Receipt Date: 20181113
  Transmission Date: 20190205
  Serious: Yes (Death, Hospitalization, Other)
  Sender: FDA-Public Use
  Company Number: KR-009507513-1808KOR002015

PATIENT
  Sex: Female

DRUGS (69)
  1. TARGIN [Concomitant]
     Active Substance: NALOXONE HYDROCHLORIDE\OXYCODONE HYDROCHLORIDE
     Dosage: UNK
     Dates: start: 20180725
  2. NAXEN [Concomitant]
     Dosage: UNK
     Dates: start: 20180726, end: 20180730
  3. SODIUM CHLORIDE. [Concomitant]
     Active Substance: SODIUM CHLORIDE
     Dosage: UNK
     Dates: start: 20180824
  4. SODIUM CHLORIDE. [Concomitant]
     Active Substance: SODIUM CHLORIDE
     Dosage: (STRENGTH: 0.45G/50ML)
     Dates: start: 20180914, end: 20181016
  5. TRIDOL (BUPRENORPHINE) [Concomitant]
     Dosage: UNK
     Dates: start: 20180901
  6. ALBUMIN HUMAN [Concomitant]
     Active Substance: ALBUMIN HUMAN
     Dosage: UNK
     Dates: start: 20180915
  7. CIPROFLOXACIN. [Concomitant]
     Active Substance: CIPROFLOXACIN
     Dosage: (STRENGTH: 400MG/200ML)
     Dates: start: 20180913, end: 20180914
  8. DUROGESIC [Concomitant]
     Active Substance: FENTANYL
     Dosage: 100MCG/H 42CM2
     Dates: start: 20180824
  9. ABSTRAL [Concomitant]
     Active Substance: FENTANYL CITRATE
     Dosage: (STRENGTH: 400 MICROGRAM)
     Dates: start: 20180726
  10. ABSTRAL [Concomitant]
     Active Substance: FENTANYL CITRATE
     Dosage: (STRENGTH: 400 MICROGRAM)
     Dates: start: 20180901, end: 20181014
  11. SODIUM CHLORIDE. [Concomitant]
     Active Substance: SODIUM CHLORIDE
     Dosage: UNK
     Dates: start: 20180910, end: 20180928
  12. MEPERIDINE HYDROCHLORIDE. [Concomitant]
     Active Substance: MEPERIDINE HYDROCHLORIDE
     Dosage: UNK
     Dates: start: 20180913, end: 20180919
  13. NORPIN INJECTION [Concomitant]
     Dosage: UNK
     Dates: start: 20180917, end: 20180926
  14. KEYTRUDA [Suspect]
     Active Substance: PEMBROLIZUMAB
     Dosage: UNK
     Dates: start: 20180824
  15. ABSTRAL [Concomitant]
     Active Substance: FENTANYL CITRATE
     Dosage: (STRENGTH: 400 MICROGRAM)
     Dates: start: 20180821
  16. LASIX [Concomitant]
     Active Substance: FUROSEMIDE
     Dosage: UNK
     Dates: start: 20180730
  17. SODIUM CHLORIDE. [Concomitant]
     Active Substance: SODIUM CHLORIDE
     Dosage: UNK
     Dates: start: 20180730
  18. MAGO [Concomitant]
     Dosage: UNK
     Dates: start: 20180822, end: 20180823
  19. BESZYME [Concomitant]
     Dosage: UNK
     Dates: start: 20180823, end: 20180824
  20. INVANZ [Concomitant]
     Active Substance: ERTAPENEM SODIUM
     Dosage: UNK
     Dates: start: 20180921, end: 20180927
  21. KEYTRUDA [Suspect]
     Active Substance: PEMBROLIZUMAB
     Dosage: UNK
     Dates: start: 20180730
  22. KEYTRUDA [Suspect]
     Active Substance: PEMBROLIZUMAB
     Dosage: UNK
     Dates: start: 20181006
  23. JURNISTA [Concomitant]
     Active Substance: HYDROMORPHONE HYDROCHLORIDE
     Dosage: UNK MILLIGRAM
     Dates: start: 20180725
  24. TARGIN [Concomitant]
     Active Substance: NALOXONE HYDROCHLORIDE\OXYCODONE HYDROCHLORIDE
     Dosage: UNK
     Dates: start: 20180726, end: 20180730
  25. DUROGESIC [Concomitant]
     Active Substance: FENTANYL
     Dosage: 100MCG/H 42CM2
     Dates: start: 20180727
  26. SODIUM CHLORIDE. [Concomitant]
     Active Substance: SODIUM CHLORIDE
     Dosage: UNK
     Dates: start: 20180728
  27. DEXTROSE (+) SODIUM CHLORIDE [Concomitant]
     Dosage: 1000 ML
  28. TRIDOL (BUPRENORPHINE) [Concomitant]
     Dosage: UNK
     Dates: start: 20180821, end: 20180824
  29. DUPHALAC [Concomitant]
     Active Substance: LACTULOSE
     Dosage: UNK
     Dates: start: 20180821, end: 20180824
  30. DEXTROSE. [Concomitant]
     Active Substance: DEXTROSE
     Dosage: 200 MILLILITER (BAG)
     Dates: start: 20180918
  31. KEYTRUDA [Suspect]
     Active Substance: PEMBROLIZUMAB
     Indication: CERVIX CARCINOMA
     Dosage: UNK
     Dates: start: 20180707
  32. DUROGESIC [Concomitant]
     Active Substance: FENTANYL
     Dosage: 100MCG/H 42CM2
     Dates: start: 20180730
  33. ABSTRAL [Concomitant]
     Active Substance: FENTANYL CITRATE
     Dosage: (STRENGTH: 400 MICROGRAM)
     Dates: start: 20180822, end: 20180824
  34. LASIX [Concomitant]
     Active Substance: FUROSEMIDE
     Dosage: UNK
     Dates: start: 20180823
  35. SODIUM CHLORIDE. [Concomitant]
     Active Substance: SODIUM CHLORIDE
     Dosage: UNK
     Dates: start: 20180729
  36. SODIUM CHLORIDE. [Concomitant]
     Active Substance: SODIUM CHLORIDE
     Dosage: UNK
     Dates: start: 20180729, end: 20180731
  37. HEPARIN SODIUM. [Concomitant]
     Active Substance: HEPARIN SODIUM
     Dosage: (STRENGTH: 1000IU/10ML)
     Dates: start: 20180913
  38. TRIAXONE [Concomitant]
     Dosage: UNK
     Dates: start: 20180917
  39. INVANZ [Concomitant]
     Active Substance: ERTAPENEM SODIUM
     Dosage: UNK
     Dates: start: 20180920
  40. CETAMADOL [Concomitant]
     Dosage: UNK
     Dates: start: 20180730
  41. DUROGESIC [Concomitant]
     Active Substance: FENTANYL
     Dosage: 12MCG/H 5.2SCM2
     Dates: start: 20180822
  42. ABSTRAL [Concomitant]
     Active Substance: FENTANYL CITRATE
     Dosage: (STRENGTH: 400 MICROGRAM)
     Dates: start: 20180725, end: 20180730
  43. ABSTRAL [Concomitant]
     Active Substance: FENTANYL CITRATE
     Dosage: (STRENGTH: 400 MICROGRAM)
     Dates: start: 20180824
  44. SODIUM CHLORIDE. [Concomitant]
     Active Substance: SODIUM CHLORIDE
     Dosage: UNK
     Dates: start: 20180730
  45. DEXTROSE. [Concomitant]
     Active Substance: DEXTROSE
     Dosage: 200 MILLILITER (BAG)
     Dates: start: 20180919
  46. KEYTRUDA [Suspect]
     Active Substance: PEMBROLIZUMAB
     Dosage: UNK
     Dates: start: 20180915
  47. CETAMADOL [Concomitant]
     Dosage: UNK
     Dates: start: 20180725
  48. DUROGESIC [Concomitant]
     Active Substance: FENTANYL
     Dosage: 100MCG/H 42CM2
     Dates: start: 20180822
  49. ABSTRAL [Concomitant]
     Active Substance: FENTANYL CITRATE
     Dosage: (STRENGTH: 400 MICROGRAM)
     Dates: start: 20180728
  50. ABSTRAL [Concomitant]
     Active Substance: FENTANYL CITRATE
     Dosage: (STRENGTH: 400 MICROGRAM)
     Dates: start: 20180729
  51. LASIX [Concomitant]
     Active Substance: FUROSEMIDE
     Dosage: UNK
     Dates: start: 20180729
  52. SODIUM CHLORIDE. [Concomitant]
     Active Substance: SODIUM CHLORIDE
     Dosage: UNK
     Dates: start: 20180914, end: 20181006
  53. SODIUM CHLORIDE. [Concomitant]
     Active Substance: SODIUM CHLORIDE
     Dosage: (STRENGTH: 0.45G/50ML/BAG)
     Dates: start: 20180911, end: 20181006
  54. CALCIUM GLUCONATE. [Concomitant]
     Active Substance: CALCIUM GLUCONATE
  55. MAGO [Concomitant]
     Dosage: UNK
     Dates: start: 20180824
  56. SMOFKABIVEN [Concomitant]
     Active Substance: AMINO ACIDS\DEXTROSE\ELECTROLYTES NOS\SOYBEAN OIL
  57. ALBUMIN HUMAN [Concomitant]
     Active Substance: ALBUMIN HUMAN
     Dosage: UNK
     Dates: start: 20180911, end: 20181010
  58. MORPHINE [Concomitant]
     Active Substance: MORPHINE
     Dosage: UNK
     Dates: start: 20180917, end: 20181001
  59. VANCOCIN [Concomitant]
     Active Substance: VANCOMYCIN HYDROCHLORIDE
     Dosage: UNK
     Dates: start: 20180918, end: 20180919
  60. PINE [Concomitant]
     Dosage: (STRENGHT: 1000 IU/ML)
  61. JURNISTA [Concomitant]
     Active Substance: HYDROMORPHONE HYDROCHLORIDE
     Dosage: UNK
     Dates: start: 20180726, end: 20180730
  62. CETAMADOL [Concomitant]
     Dosage: UNK
     Dates: start: 20180726, end: 20180730
  63. DUROGESIC [Concomitant]
     Active Substance: FENTANYL
     Dosage: 25 MCG/H 10CM2
     Dates: start: 20180725, end: 20180726
  64. ABSTRAL [Concomitant]
     Active Substance: FENTANYL CITRATE
     Dosage: (STRENGTH: 400 MICROGRAM)
     Dates: start: 20180730
  65. NAXEN [Concomitant]
     Dosage: UNK
     Dates: start: 20180730
  66. CHLORPHENIRAMINE MALEATE. [Concomitant]
     Active Substance: CHLORPHENIRAMINE MALEATE
     Dosage: UNK
     Dates: start: 20180729
  67. CHLORPHENIRAMINE MALEATE. [Concomitant]
     Active Substance: CHLORPHENIRAMINE MALEATE
     Dosage: UNK
     Dates: start: 20180910, end: 20181012
  68. KALIMATE [Concomitant]
     Active Substance: CALCIUM POLYSTYRENE SULFONATE
     Dosage: UNK
     Dates: start: 20180821
  69. TRIDOL (BUPRENORPHINE) [Concomitant]
     Dosage: UNK
     Dates: start: 20180822

REACTIONS (3)
  - Malignant neoplasm progression [Fatal]
  - Product use in unapproved indication [Unknown]
  - Adverse event [Unknown]

NARRATIVE: CASE EVENT DATE: 2018
